FAERS Safety Report 7215191-7 (Version None)
Quarter: 2011Q1

REPORT INFORMATION
  Report Type: 
  Country: None (occurrence: None)
  Receive Date: 20110107
  Receipt Date: 20101013
  Transmission Date: 20110831
  Serious: No
  Sender: FDA-Public Use
  Company Number: A0887099A

PATIENT
  Sex: Male

DRUGS (2)
  1. LOVAZA [Suspect]
     Dosage: 4G PER DAY
     Route: 048
  2. STATINS [Concomitant]

REACTIONS (3)
  - FATIGUE [None]
  - BACK PAIN [None]
  - ABDOMINAL DISTENSION [None]
